FAERS Safety Report 15287726 (Version 1)
Quarter: 2018Q3

REPORT INFORMATION
  Report Type: Spontaneous
  Country: DE (occurrence: DE)
  Receive Date: 20180817
  Receipt Date: 20180817
  Transmission Date: 20181010
  Serious: Yes (Hospitalization)
  Sender: FDA-Public Use
  Company Number: DE-ASTRAZENECA-2018SF01686

PATIENT
  Age: 61 Year
  Sex: Female

DRUGS (12)
  1. SPASMEX [Concomitant]
     Dates: end: 20160126
  2. PREGABALIN. [Concomitant]
     Active Substance: PREGABALIN
     Route: 048
  3. PIPAMPERONE [Concomitant]
     Active Substance: PIPAMPERONE
     Dosage: AS REQUIRED
     Route: 048
     Dates: start: 20160107, end: 20160126
  4. TRAZODONE [Concomitant]
     Active Substance: TRAZODONE HYDROCHLORIDE
     Dosage: 100.0MG UNKNOWN
     Route: 048
  5. DUOTRAV [Concomitant]
     Active Substance: TIMOLOL MALEATE\TRAVOPROST
     Dosage: 1.0GTT UNKNOWN
     Dates: start: 20160106
  6. BISOPROLOL [Concomitant]
     Active Substance: BISOPROLOL
     Dosage: 5.0MG UNKNOWN
     Route: 048
  7. SEROQUEL XR [Suspect]
     Active Substance: QUETIAPINE FUMARATE
     Route: 048
     Dates: start: 20160119, end: 20160125
  8. PANTOPRAZOLE [Concomitant]
     Active Substance: PANTOPRAZOLE
     Route: 048
     Dates: start: 20160121
  9. DULOXETINE. [Concomitant]
     Active Substance: DULOXETINE
  10. PARACETAMOL [Concomitant]
     Active Substance: ACETAMINOPHEN
     Dates: start: 20160125
  11. TAVOR [Concomitant]
     Route: 048
     Dates: start: 20160119, end: 20160125
  12. TAVOR [Concomitant]
     Route: 048
     Dates: start: 20160126, end: 20160128

REACTIONS (7)
  - Speech disorder [Recovered/Resolved]
  - Aphasia [Recovered/Resolved]
  - Sedation [Recovered/Resolved]
  - Dizziness [Recovered/Resolved]
  - Vertigo [Recovered/Resolved]
  - Asthenia [Recovered/Resolved]
  - Visual impairment [Recovered/Resolved]

NARRATIVE: CASE EVENT DATE: 20160126
